FAERS Safety Report 10424221 (Version 3)
Quarter: 2014Q3

REPORT INFORMATION
  Report Type: Spontaneous
  Country: HU (occurrence: HU)
  Receive Date: 20140902
  Receipt Date: 20140912
  Transmission Date: 20150326
  Serious: Yes (Hospitalization, Other)
  Sender: FDA-Public Use
  Company Number: HU-PFIZER INC-2014217325

PATIENT
  Age: 72 Year
  Sex: Male

DRUGS (1)
  1. SUTENT [Suspect]
     Active Substance: SUNITINIB MALATE
     Indication: RENAL CANCER METASTATIC
     Dosage: 37.5 MG, ONCE DAILY (4 WEEKS ON/2 OFF)
     Route: 048
     Dates: start: 20130402

REACTIONS (7)
  - Intervertebral disc degeneration [Unknown]
  - Blood pressure increased [Recovered/Resolved]
  - General physical health deterioration [Not Recovered/Not Resolved]
  - Chest discomfort [Unknown]
  - Neuralgia [Not Recovered/Not Resolved]
  - Blood pressure systolic increased [Recovered/Resolved]
  - Asthenia [Not Recovered/Not Resolved]

NARRATIVE: CASE EVENT DATE: 20140725
